FAERS Safety Report 14403826 (Version 3)
Quarter: 2018Q1

REPORT INFORMATION
  Report Type: Spontaneous
  Country: US (occurrence: US)
  Receive Date: 20180117
  Receipt Date: 20180312
  Transmission Date: 20180509
  Serious: No
  Sender: FDA-Public Use
  Company Number: US-GLAXOSMITHKLINE-US2018GSK008073

PATIENT
  Sex: Male

DRUGS (23)
  1. INFLUENZA SHOT [Suspect]
     Active Substance: INFLUENZA VIRUS VACCINE
     Indication: PROPHYLAXIS
  2. DIAZEPAM. [Concomitant]
     Active Substance: DIAZEPAM
  3. MELOXICAM. [Concomitant]
     Active Substance: MELOXICAM
  4. XARELTO [Concomitant]
     Active Substance: RIVAROXABAN
  5. OMEPRAZOLE. [Concomitant]
     Active Substance: OMEPRAZOLE
  6. VENTOLIN HFA [Suspect]
     Active Substance: ALBUTEROL SULFATE
     Indication: COUGH
  7. ASCORBIC ACID. [Concomitant]
     Active Substance: ASCORBIC ACID
  8. ATENOLOL. [Concomitant]
     Active Substance: ATENOLOL
  9. AZITHROMYCIN ANHYDROUS. [Concomitant]
     Active Substance: AZITHROMYCIN ANHYDROUS
  10. VITAMIN D [Concomitant]
     Active Substance: CHOLECALCIFEROL
  11. CLOBETASOL [Concomitant]
     Active Substance: CLOBETASOL
  12. TRAMADOL. [Concomitant]
     Active Substance: TRAMADOL
  13. ALPRAZOLAM. [Concomitant]
     Active Substance: ALPRAZOLAM
  14. BENZONATATE. [Concomitant]
     Active Substance: BENZONATATE
  15. OMEGA-3-ACID ETHYL ESTERS. [Concomitant]
     Active Substance: OMEGA-3-ACID ETHYL ESTERS
  16. CLOTRIMAZOLE. [Concomitant]
     Active Substance: CLOTRIMAZOLE
  17. VENTOLIN HFA [Suspect]
     Active Substance: ALBUTEROL SULFATE
     Indication: BRONCHIAL IRRITATION
     Dosage: 2 PUFF(S), SINGLE
     Dates: start: 20180114, end: 20180114
  18. ACYCLOVIR. [Concomitant]
     Active Substance: ACYCLOVIR
  19. TIZANIDINE. [Concomitant]
     Active Substance: TIZANIDINE
  20. METOPROLOL SUCCINATE. [Concomitant]
     Active Substance: METOPROLOL SUCCINATE
  21. SIMVASTATIN. [Concomitant]
     Active Substance: SIMVASTATIN
  22. VENTOLIN HFA [Suspect]
     Active Substance: ALBUTEROL SULFATE
     Indication: WHEEZING
  23. BETAMETHASONE. [Concomitant]
     Active Substance: BETAMETHASONE

REACTIONS (6)
  - Product quality issue [Unknown]
  - Wheezing [Unknown]
  - Respiratory syncytial virus infection [Unknown]
  - Influenza [Unknown]
  - Cough [Unknown]
  - Throat irritation [Unknown]
